FAERS Safety Report 18546209 (Version 1)
Quarter: 2020Q4

REPORT INFORMATION
  Report Type: Spontaneous
  Country: US (occurrence: US)
  Receive Date: 20201125
  Receipt Date: 20201125
  Transmission Date: 20210114
  Serious: Yes (Other)
  Sender: FDA-Public Use
  Company Number: US-PURDUE-USA-2020-0177739

PATIENT
  Sex: Male

DRUGS (8)
  1. OXYCONTIN [Suspect]
     Active Substance: OXYCODONE HYDROCHLORIDE
     Dosage: UNK UNK, UNK
     Route: 048
  2. OXYCONTIN [Suspect]
     Active Substance: OXYCODONE HYDROCHLORIDE
     Dosage: 40 UNK, UNK
     Route: 048
  3. OXYCONTIN [Suspect]
     Active Substance: OXYCODONE HYDROCHLORIDE
     Indication: PAIN
     Dosage: 360 MG, DAILY
     Route: 048
     Dates: start: 2000, end: 2019
  4. HYDROCODONE BITARTRATE AND ACETAMINOPHEN [Suspect]
     Active Substance: ACETAMINOPHEN\HYDROCODONE BITARTRATE
     Indication: PAIN
     Dosage: UNK
     Route: 048
  5. VICODIN [Suspect]
     Active Substance: ACETAMINOPHEN\HYDROCODONE BITARTRATE
     Indication: PAIN
     Dosage: UNK
     Route: 065
     Dates: start: 1993, end: 2000
  6. OXYCODONE HCL TABLETS (RHODES 91-490) [Suspect]
     Active Substance: OXYCODONE HYDROCHLORIDE
     Indication: PAIN
     Dosage: UNK
     Route: 048
  7. OXYCODONE/ ACETAMINOPHEN TABLETS [Suspect]
     Active Substance: ACETAMINOPHEN\OXYCODONE HYDROCHLORIDE
     Indication: PAIN
     Dosage: UNK
     Route: 048
  8. PERCOCET                           /00446701/ [Suspect]
     Active Substance: ACETAMINOPHEN\OXYCODONE HYDROCHLORIDE\OXYCODONE TEREPHTHALATE
     Indication: PAIN
     Dosage: UNK
     Route: 065
     Dates: start: 1993, end: 2000

REACTIONS (22)
  - Arterial disorder [Unknown]
  - Chills [Unknown]
  - Agitation [Unknown]
  - Vomiting [Unknown]
  - Suicidal behaviour [Unknown]
  - Post-traumatic stress disorder [Unknown]
  - Tremor [Unknown]
  - Gallbladder disorder [Unknown]
  - Drug withdrawal syndrome [Unknown]
  - Cardiac disorder [Unknown]
  - Insomnia [Unknown]
  - Panic attack [Unknown]
  - Disturbance in attention [Unknown]
  - Constipation [Unknown]
  - Stress [Unknown]
  - Hyperhidrosis [Unknown]
  - Anxiety [Unknown]
  - Drug dependence [Unknown]
  - Mitral valve incompetence [Unknown]
  - Diarrhoea [Unknown]
  - Restlessness [Unknown]
  - Blood testosterone decreased [Unknown]
